FAERS Safety Report 16255800 (Version 3)
Quarter: 2020Q4

REPORT INFORMATION
  Report Type: Spontaneous
  Country: US (occurrence: US)
  Receive Date: 20190430
  Receipt Date: 20201113
  Transmission Date: 20210113
  Serious: Yes (Other)
  Sender: FDA-Public Use
  Company Number: US-PFIZER INC-2019181351

PATIENT
  Age: 20 Year
  Sex: Male

DRUGS (1)
  1. PROMETHAZINE HCL [Suspect]
     Active Substance: PROMETHAZINE HYDROCHLORIDE
     Dosage: 25 MG, UNK (UNINTENTIONALLY INFUSED INTO THE RADIAL ARTERY OF HIS LEFT FOREARM)
     Route: 013

REACTIONS (11)
  - Necrosis [Recovering/Resolving]
  - Skin discolouration [Recovering/Resolving]
  - Peripheral ischaemia [Recovering/Resolving]
  - Livedo reticularis [Recovering/Resolving]
  - Pallor [Recovering/Resolving]
  - Incorrect route of product administration [Unknown]
  - Paraesthesia [Recovering/Resolving]
  - Muscular weakness [Recovering/Resolving]
  - Pain in extremity [Recovering/Resolving]
  - Asthenia [Recovering/Resolving]
  - Depression [Recovering/Resolving]
